FAERS Safety Report 5356652-5 (Version None)
Quarter: 2007Q2

REPORT INFORMATION
  Report Type: 
  Country: None (occurrence: None)
  Receive Date: 20070612
  Receipt Date: 20070612
  Transmission Date: 20071010
  Serious: Yes (Death, Life-Threatening, Hospitalization, Disabling, Other)
  Sender: FDA-Public Use
  Company Number: None

PATIENT
  Age: 72 Year
  Sex: Male

DRUGS (1)
  1. RENOGRAFIN 60% [Suspect]
     Indication: SPINAL MYELOGRAM
     Dates: start: 20070313

REACTIONS (3)
  - HIP FRACTURE [None]
  - MEDICATION ERROR [None]
  - POST PROCEDURAL COMPLICATION [None]
